FAERS Safety Report 6338306-1 (Version None)
Quarter: 2009Q3

REPORT INFORMATION
  Report Type: 
  Country: None (occurrence: None)
  Receive Date: 20090902
  Receipt Date: 20090819
  Transmission Date: 20100115
  Serious: Yes (Other)
  Sender: FDA-Public Use
  Company Number: NL-GENENTECH-288539

PATIENT
  Sex: Male

DRUGS (3)
  1. RANIBIZUMAB [Suspect]
     Indication: MACULAR DEGENERATION
     Dosage: 0.5 MG, UNK
     Route: 031
     Dates: start: 19900201
  2. RANIBIZUMAB [Suspect]
     Dosage: 0.5 MG, UNK
     Route: 031
     Dates: start: 20090324
  3. RANIBIZUMAB [Suspect]
     Dosage: 0.5 MG, UNK
     Route: 031
     Dates: start: 20090512

REACTIONS (2)
  - CEREBROVASCULAR ACCIDENT [None]
  - VISUAL FIELD DEFECT [None]
